FAERS Safety Report 6054899-6 (Version None)
Quarter: 2009Q1

REPORT INFORMATION
  Report Type: 
  Country: None (occurrence: None)
  Receive Date: 20090128
  Receipt Date: 20090116
  Transmission Date: 20090719
  Serious: Yes (Disabling)
  Sender: FDA-Public Use
  Company Number: PHHY2008IT26695

PATIENT
  Sex: Female

DRUGS (10)
  1. ZOMETA [Suspect]
     Indication: MULTIPLE MYELOMA
     Dosage: 4 MG MONTLY
     Route: 042
     Dates: start: 20040101
  2. SOLDESAM [Concomitant]
  3. LANOXIN [Concomitant]
  4. ENAPREN [Concomitant]
  5. SEREUPIN [Concomitant]
     Route: 048
  6. LASIX [Concomitant]
     Route: 048
  7. COUMADIN [Concomitant]
     Route: 048
  8. OMEPRAZOLE [Concomitant]
  9. PREFOLIC [Concomitant]
  10. SAMYR [Concomitant]

REACTIONS (6)
  - BONE DISORDER [None]
  - BONE LESION [None]
  - LOOSE TOOTH [None]
  - OROANTRAL FISTULA [None]
  - OSTEONECROSIS [None]
  - TOOTH EXTRACTION [None]
